FAERS Safety Report 9311023 (Version 1)
Quarter: 2013Q2

REPORT INFORMATION
  Report Type: Spontaneous
  Country: US (occurrence: None)
  Receive Date: 20130523
  Receipt Date: 20130523
  Transmission Date: 20140414
  Serious: No
  Sender: FDA-Public Use
  Company Number: None

PATIENT
  Age: 33 Year
  Sex: Female

DRUGS (1)
  1. RIVAROXABAN 15 MG JANSSEN [Suspect]
     Dosage: 15 MG BID PO
     Route: 048
     Dates: start: 20130405, end: 20130406

REACTIONS (2)
  - Alanine aminotransferase increased [None]
  - Aspartate aminotransferase increased [None]
